FAERS Safety Report 13940178 (Version 1)
Quarter: 2017Q3

REPORT INFORMATION
  Report Type: Spontaneous
  Country: US (occurrence: None)
  Receive Date: 20170906
  Receipt Date: 20170906
  Transmission Date: 20171127
  Serious: Yes (Disabling)
  Sender: FDA-Public Use
  Company Number: None

PATIENT
  Age: 77 Year
  Sex: Female
  Weight: 53.52 kg

DRUGS (5)
  1. LEVOTHYROXINE. [Concomitant]
     Active Substance: LEVOTHYROXINE
  2. LUMIGAN [Concomitant]
     Active Substance: BIMATOPROST
  3. ESTRACE [Concomitant]
     Active Substance: ESTRADIOL
  4. TIMOLOL MALEATE. [Concomitant]
     Active Substance: TIMOLOL MALEATE
  5. FORTEO [Suspect]
     Active Substance: TERIPARATIDE
     Indication: OSTEOPOROSIS
     Dosage: 1 SHOT AT BEDTIME INJECTION IN ABDOMEN
     Dates: start: 20150705, end: 20170704

REACTIONS (3)
  - Tooth resorption [None]
  - Joint dislocation [None]
  - Pain in jaw [None]

NARRATIVE: CASE EVENT DATE: 20170303
